FAERS Safety Report 25841728 (Version 1)
Quarter: 2025Q3

REPORT INFORMATION
  Report Type: Spontaneous
  Country: US (occurrence: US)
  Receive Date: 20250924
  Receipt Date: 20250924
  Transmission Date: 20251021
  Serious: No
  Sender: NUVO PHARMACEUTICALS
  Company Number: US-Nuvo Pharmaceuticals Inc-2185201

PATIENT
  Age: 71 Year
  Sex: Female
  Weight: 58 kg

DRUGS (5)
  1. ACETAMINOPHEN\BUTALBITAL\CAFFEINE [Suspect]
     Active Substance: ACETAMINOPHEN\BUTALBITAL\CAFFEINE
     Indication: Spinal pain
     Dates: start: 2025
  2. PRAVASTATIN [Concomitant]
     Active Substance: PRAVASTATIN
  3. CODEINE SULFATE [Concomitant]
     Active Substance: CODEINE SULFATE
  4. VITAMIN K1 [Concomitant]
     Active Substance: PHYTONADIONE
  5. VITAMIN D [Concomitant]
     Active Substance: VITAMIN D NOS

REACTIONS (4)
  - Abdominal pain upper [Not Recovered/Not Resolved]
  - Product use in unapproved indication [Unknown]
  - Dizziness [Not Recovered/Not Resolved]
  - Nausea [Not Recovered/Not Resolved]
